FAERS Safety Report 23722953 (Version 1)
Quarter: 2024Q2

REPORT INFORMATION
  Report Type: Report from Study
  Country: US (occurrence: US)
  Receive Date: 20240409
  Receipt Date: 20240409
  Transmission Date: 20240716
  Serious: Yes (Hospitalization)
  Sender: FDA-Public Use
  Company Number: US-Eisai-EC-2024-163342

PATIENT
  Age: 77 Year
  Sex: Male

DRUGS (4)
  1. LENVIMA [Suspect]
     Active Substance: LENVATINIB
     Indication: Renal cancer
     Route: 048
     Dates: start: 20231025, end: 20231214
  2. LENVIMA [Suspect]
     Active Substance: LENVATINIB
     Route: 048
     Dates: start: 20240212, end: 2024
  3. LENVIMA [Suspect]
     Active Substance: LENVATINIB
     Dosage: 10MG EVERY OTHER DAY
     Route: 048
     Dates: start: 20240320
  4. KEYTRUDA [Concomitant]
     Active Substance: PEMBROLIZUMAB
     Indication: Renal cancer
     Dosage: DOSE UNKNOWN
     Route: 042
     Dates: start: 202310

REACTIONS (4)
  - Confusional state [Recovering/Resolving]
  - Speech disorder [Recovering/Resolving]
  - Nervous system disorder [Recovering/Resolving]
  - Hyperkeratosis [Unknown]

NARRATIVE: CASE EVENT DATE: 20240201
